FAERS Safety Report 6326378-X (Version None)
Quarter: 2009Q3

REPORT INFORMATION
  Report Type: 
  Country: None (occurrence: None)
  Receive Date: 20090821
  Receipt Date: 20090812
  Transmission Date: 20100115
  Serious: Yes (Other)
  Sender: FDA-Public Use
  Company Number: 001482

PATIENT
  Sex: Male
  Weight: 70 kg

DRUGS (2)
  1. VIMPAT [Suspect]
     Indication: CEREBRAL DISORDER
     Dosage: 50 MG QD
     Dates: start: 20090518
  2. KEPPRA [Suspect]
     Indication: CEREBRAL DISORDER
     Dosage: 500-100 MG
     Dates: start: 20060101

REACTIONS (1)
  - DYSPNOEA [None]
